FAERS Safety Report 18312457 (Version 1)
Quarter: 2020Q3

REPORT INFORMATION
  Report Type: Spontaneous
  Country: US (occurrence: US)
  Receive Date: 20200925
  Receipt Date: 20200925
  Transmission Date: 20201103
  Serious: No
  Sender: FDA-Public Use
  Company Number: US-BIOVITRUM-2020US5121

PATIENT
  Sex: Male
  Weight: 7 kg

DRUGS (6)
  1. CAROSPIR [Concomitant]
     Active Substance: SPIRONOLACTONE
  2. HYDROCHLOROTHIAZIDE. [Concomitant]
     Active Substance: HYDROCHLOROTHIAZIDE
  3. ALBUTEROL SULFATE. [Concomitant]
     Active Substance: ALBUTEROL SULFATE
  4. SYNAGIS [Suspect]
     Active Substance: PALIVIZUMAB
     Indication: ANTIVIRAL PROPHYLAXIS
     Route: 030
  5. PULMICORT TURBUHALER [Concomitant]
     Active Substance: BUDESONIDE
  6. POLY?VI?SOL [Concomitant]
     Active Substance: VITAMINS

REACTIONS (2)
  - Trisomy 21 [Unknown]
  - Chronic respiratory disease [Unknown]
